FAERS Safety Report 8827218 (Version 1)
Quarter: 2012Q4

REPORT INFORMATION
  Report Type: 
  Country: CN (occurrence: CN)
  Receive Date: 20121006
  Receipt Date: 20121006
  Transmission Date: 20130627
  Serious: Yes (Other)
  Sender: FDA-Public Use
  Company Number: CN-ACCORD-014818

PATIENT
  Age: 8 Year
  Sex: Male

DRUGS (2)
  1. LEVETIRACETAM [Suspect]
     Indication: JUVENILE MYOCLONIC EPILEPSY
     Dosage: 6mg/kg. Initially dose was increased to 500mg/day, then it was again halved and then finally stopped
  2. SODIUM VALPROATE [Concomitant]
     Indication: JUVENILE MYOCLONIC EPILEPSY

REACTIONS (1)
  - Epilepsy [Recovered/Resolved]
